FAERS Safety Report 6934917-0 (Version None)
Quarter: 2010Q3

REPORT INFORMATION
  Report Type: 
  Country: None (occurrence: None)
  Receive Date: 20100821
  Receipt Date: 20100810
  Transmission Date: 20110219
  Serious: Yes (Other)
  Sender: FDA-Public Use
  Company Number: PHHY2010US47806

PATIENT
  Sex: Female
  Weight: 90.703 kg

DRUGS (3)
  1. FANAPT [Suspect]
     Indication: SCHIZOPHRENIA
     Dosage: 3 MG, BID
     Route: 048
     Dates: start: 20100720
  2. FANAPT [Suspect]
     Dosage: 12 MG DAILY
     Route: 048
  3. FANAPT [Suspect]
     Dosage: 18 MG DAILY
     Route: 048
     Dates: end: 20100730

REACTIONS (2)
  - NAUSEA [None]
  - VOMITING [None]
